FAERS Safety Report 10296233 (Version 2)
Quarter: 2014Q3

REPORT INFORMATION
  Report Type: Spontaneous
  Country: US (occurrence: US)
  Receive Date: 20140711
  Receipt Date: 20140722
  Transmission Date: 20150326
  Serious: Yes (Other)
  Sender: FDA-Public Use
  Company Number: US-009507513-1407USA002129

PATIENT
  Age: 17 Year
  Sex: Female

DRUGS (1)
  1. DEXAMETHASONE. [Suspect]
     Active Substance: DEXAMETHASONE
     Indication: GLIOBLASTOMA
     Route: 048

REACTIONS (3)
  - Substance-induced psychotic disorder [Unknown]
  - Headache [Recovered/Resolved]
  - Suicidal ideation [Recovered/Resolved]
